FAERS Safety Report 4477897-2 (Version None)
Quarter: 2004Q4

REPORT INFORMATION
  Report Type: 
  Country: None (occurrence: None)
  Receive Date: 20041018
  Receipt Date: 20041012
  Transmission Date: 20050328
  Serious: Yes (Hospitalization)
  Sender: FDA-Public Use
  Company Number: DE-MERCK-0410DEU00395

PATIENT
  Age: 39 Year
  Sex: Female

DRUGS (2)
  1. VIOXX [Suspect]
     Indication: SYSTEMIC LUPUS ERYTHEMATOSUS
     Route: 048
     Dates: start: 20030101, end: 20040301
  2. VIOXX [Suspect]
     Route: 048
     Dates: start: 20040301

REACTIONS (4)
  - ARRHYTHMIA [None]
  - DYSPNOEA [None]
  - FLUID RETENTION [None]
  - PRESCRIBED OVERDOSE [None]
